FAERS Safety Report 8624616-1 (Version None)
Quarter: 2012Q3

REPORT INFORMATION
  Report Type: 
  Country: None (occurrence: None)
  Receive Date: 20120827
  Receipt Date: 20120822
  Transmission Date: 20120928
  Serious: Yes (Other)
  Sender: FDA-Public Use
  Company Number: BR-PFIZER INC-2012201982

PATIENT
  Age: 59 Year
  Sex: Male
  Weight: 77 kg

DRUGS (5)
  1. PANTOPRAZOLE [Suspect]
     Indication: OESOPHAGITIS
     Dosage: 1 DF, 1X/DAY
     Route: 048
     Dates: start: 20120708, end: 20120718
  2. LIPIDIL [Concomitant]
     Indication: BLOOD TRIGLYCERIDES ABNORMAL
  3. PANTOPRAZOLE [Suspect]
     Dosage: 1 DF, 1X/DAY
     Route: 048
     Dates: start: 20120701, end: 20120728
  4. LIPIDIL [Concomitant]
     Indication: BLOOD CHOLESTEROL ABNORMAL
     Dosage: 1 DF, UNK
     Route: 048
     Dates: start: 20100101
  5. NAPRIX [Concomitant]
     Indication: HYPERTENSION
     Dosage: 1 DF, UNK
     Route: 048
     Dates: start: 20120701

REACTIONS (5)
  - FAECES DISCOLOURED [None]
  - OFF LABEL USE [None]
  - BLOOD PRESSURE INCREASED [None]
  - HEADACHE [None]
  - VERTIGO [None]
